FAERS Safety Report 8612986-X (Version None)
Quarter: 2012Q3

REPORT INFORMATION
  Report Type: 
  Country: None (occurrence: None)
  Receive Date: 20120822
  Receipt Date: 20120817
  Transmission Date: 20120928
  Serious: Yes (Other)
  Sender: FDA-Public Use
  Company Number: PL-PFIZER INC-2012195370

PATIENT
  Sex: Female

DRUGS (1)
  1. AZITHROMYCIN [Suspect]
     Dosage: 2 G, UNK

REACTIONS (4)
  - RASH MACULAR [None]
  - BURNING SENSATION [None]
  - ASTHENIA [None]
  - RASH PRURITIC [None]
